FAERS Safety Report 5652462-X (Version None)
Quarter: 2008Q1

REPORT INFORMATION
  Report Type: 
  Country: None (occurrence: None)
  Receive Date: 20080306
  Receipt Date: 20080222
  Transmission Date: 20080703
  Serious: Yes (Hospitalization)
  Sender: FDA-Public Use
  Company Number: DE-BAYER-200811184GPV

PATIENT
  Age: 24 Year
  Sex: Female
  Weight: 63 kg

DRUGS (1)
  1. AVELOX [Suspect]
     Indication: SINUSITIS
     Dosage: TOTAL DAILY DOSE: 400 MG  UNIT DOSE: 400 MG
     Route: 048
     Dates: start: 20071210, end: 20071210

REACTIONS (5)
  - ABASIA [None]
  - ABDOMINAL PAIN [None]
  - CARDIOVASCULAR DISORDER [None]
  - COLD SWEAT [None]
  - RESTLESSNESS [None]
